FAERS Safety Report 19985155 (Version 1)
Quarter: 2021Q4

REPORT INFORMATION
  Report Type: Spontaneous
  Country: US (occurrence: US)
  Receive Date: 20211021
  Receipt Date: 20211021
  Transmission Date: 20220303
  Serious: No
  Sender: FDA-Public Use
  Company Number: US-FRESENIUS KABI-FK202111336

PATIENT
  Sex: Male

DRUGS (1)
  1. XYLOCAINE-MPF [Suspect]
     Active Substance: LIDOCAINE HYDROCHLORIDE
     Indication: Local anaesthesia
     Dosage: UNKNOWN
     Route: 058

REACTIONS (2)
  - Pain [Recovered/Resolved]
  - Therapeutic product effect decreased [Recovered/Resolved]
